FAERS Safety Report 19680732 (Version 2)
Quarter: 2022Q1

REPORT INFORMATION
  Report Type: Spontaneous
  Country: US (occurrence: US)
  Receive Date: 20210810
  Receipt Date: 20220114
  Transmission Date: 20220423
  Serious: No
  Sender: FDA-Public Use
  Company Number: US-BEH-2021134693

PATIENT
  Sex: Female

DRUGS (2)
  1. HIZENTRA [Suspect]
     Active Substance: HUMAN IMMUNOGLOBULIN G
     Indication: Chronic inflammatory demyelinating polyradiculoneuropathy
     Dosage: 12 GRAM, QW
     Route: 058
     Dates: start: 202011
  2. SIMVASTATIN [Concomitant]
     Active Substance: SIMVASTATIN

REACTIONS (2)
  - Infection [Unknown]
  - Infection [Unknown]
